FAERS Safety Report 23355195 (Version 1)
Quarter: 2024Q1

REPORT INFORMATION
  Report Type: Spontaneous
  Country: NL (occurrence: NL)
  Receive Date: 20240102
  Receipt Date: 20240102
  Transmission Date: 20240410
  Serious: Yes (Other)
  Sender: FDA-Public Use
  Company Number: NL-AMGEN-NLDSP2023231145

PATIENT
  Age: 83 Year
  Sex: Male

DRUGS (1)
  1. TALIMOGENE LAHERPAREPVEC [Suspect]
     Active Substance: TALIMOGENE LAHERPAREPVEC
     Indication: Malignant melanoma
     Dosage: NINE CONSECUTIVE TREATMENT FOR 17 WEEKS
     Route: 065

REACTIONS (3)
  - Malignant melanoma [Unknown]
  - Melanosis [Unknown]
  - Inflammation [Unknown]

NARRATIVE: CASE EVENT DATE: 20170302
